FAERS Safety Report 4340356-1 (Version None)
Quarter: 2004Q2

REPORT INFORMATION
  Report Type: 
  Country: None (occurrence: None)
  Receive Date: 20040412
  Receipt Date: 20040325
  Transmission Date: 20050107
  Serious: Yes (Hospitalization)
  Sender: FDA-Public Use
  Company Number: DSA_24170_2004

PATIENT
  Age: 71 Year
  Sex: Female

DRUGS (1)
  1. DILTIAZEM HCL [Suspect]
     Dosage: 200 MG Q DAY PO
     Route: 048
     Dates: start: 20040202, end: 20040223

REACTIONS (4)
  - DERMATITIS EXFOLIATIVE [None]
  - ERYTHEMA MULTIFORME [None]
  - RASH MACULO-PAPULAR [None]
  - RASH PRURITIC [None]
